FAERS Safety Report 14302186 (Version 1)
Quarter: 2017Q4

REPORT INFORMATION
  Report Type: Spontaneous
  Country: US (occurrence: US)
  Receive Date: 20171218
  Receipt Date: 20171218
  Transmission Date: 20180321
  Serious: Yes (Hospitalization)
  Sender: FDA-Public Use
  Company Number: None

PATIENT
  Age: 62 Year
  Sex: Male

DRUGS (1)
  1. METHAMPHETAMINE [Suspect]
     Active Substance: METHAMPHETAMINE
     Dates: start: 20171130, end: 20171130

REACTIONS (12)
  - Drug withdrawal syndrome [None]
  - Nausea [None]
  - Dyspnoea [None]
  - Pyrexia [None]
  - Agitation [None]
  - Pruritus [None]
  - Vomiting [None]
  - Restlessness [None]
  - Blister [None]
  - Stress [None]
  - Alcohol use [None]
  - Pain in extremity [None]

NARRATIVE: CASE EVENT DATE: 20171130
